FAERS Safety Report 5083771-3 (Version None)
Quarter: 2006Q3

REPORT INFORMATION
  Report Type: 
  Country: None (occurrence: None)
  Receive Date: 20060818
  Receipt Date: 20000524
  Transmission Date: 20061208
  Serious: Yes (Disabling)
  Sender: FDA-Public Use
  Company Number: JP-ABBOTT-00P-087-0090416-00

PATIENT
  Sex: Female
  Weight: 52 kg

DRUGS (15)
  1. KLARICID [Suspect]
     Indication: ATYPICAL MYCOBACTERIAL INFECTION
     Route: 048
     Dates: start: 19990205, end: 20000113
  2. ETHAMBUTOL HYDROCHLORIDE [Suspect]
     Indication: ATYPICAL MYCOBACTERIAL INFECTION
     Route: 048
     Dates: start: 19990205, end: 19990812
  3. RIFAMPICIN [Concomitant]
     Indication: ATYPICAL MYCOBACTERIAL INFECTION
     Route: 048
     Dates: start: 19990205, end: 20000113
  4. RIFAMPICIN [Concomitant]
     Route: 048
     Dates: start: 19990205, end: 20000113
  5. STREPTOMYCIN SULFATE [Concomitant]
     Indication: ATYPICAL MYCOBACTERIAL INFECTION
     Route: 030
     Dates: start: 19990205, end: 19990211
  6. STREPTOMYCIN SULFATE [Concomitant]
     Route: 030
     Dates: start: 19990217, end: 19990220
  7. IMIDAPRIL HYDROCHLORIDE [Concomitant]
     Indication: HYPERTENSION
     Route: 048
     Dates: start: 19930101
  8. AMLODIPINE [Concomitant]
     Indication: HYPERTENSION
     Dates: start: 19991007
  9. ETIZOLAM [Concomitant]
     Indication: GENERAL ANAESTHESIA
     Route: 048
  10. ETIZOLAM [Concomitant]
     Indication: ELECTROENCEPHALOGRAM
     Route: 048
  11. BROTIZOLAM [Concomitant]
     Indication: DRUG USE FOR UNKNOWN INDICATION
     Route: 048
  12. PENTOBARBITURATE [Concomitant]
     Indication: GENERAL ANAESTHESIA
     Route: 048
  13. PENTOBARBITURATE [Concomitant]
     Indication: ELECTROENCEPHALOGRAM
  14. PROMETHAZINE HCL [Concomitant]
     Indication: GENERAL ANAESTHESIA
     Route: 048
  15. PROMETHAZINE HCL [Concomitant]
     Indication: ELECTROENCEPHALOGRAM

REACTIONS (49)
  - ASTHENIA [None]
  - CONVULSION [None]
  - DIZZINESS [None]
  - DYSGEUSIA [None]
  - DYSGRAPHIA [None]
  - DYSKINESIA [None]
  - DYSURIA [None]
  - FALL [None]
  - FEELING ABNORMAL [None]
  - FEELING JITTERY [None]
  - GAIT DISTURBANCE [None]
  - HEADACHE [None]
  - HYPERACUSIS [None]
  - HYPERREFLEXIA [None]
  - HYPOAESTHESIA [None]
  - HYPOAESTHESIA ORAL [None]
  - HYPOGEUSIA [None]
  - INSOMNIA [None]
  - MICTURITION URGENCY [None]
  - MONOPLEGIA [None]
  - MOVEMENT DISORDER [None]
  - MUSCLE ATROPHY [None]
  - MUSCLE CONTRACTIONS INVOLUNTARY [None]
  - MUSCLE DISORDER [None]
  - MUSCLE SPASMS [None]
  - MUSCLE TWITCHING [None]
  - MUSCULOSKELETAL DISORDER [None]
  - MYELOPATHY [None]
  - MYOCLONUS [None]
  - NEUROPATHY [None]
  - NEUROSIS [None]
  - OEDEMA PERIPHERAL [None]
  - PAIN [None]
  - PALLANAESTHESIA [None]
  - PARAESTHESIA [None]
  - PARALYSIS [None]
  - POLLAKIURIA [None]
  - POLYNEUROPATHY [None]
  - SCOTOMA [None]
  - SENSORY DISTURBANCE [None]
  - SKIN TIGHTNESS [None]
  - SPINAL CORD DISORDER [None]
  - SPINAL OSTEOARTHRITIS [None]
  - TINNITUS [None]
  - TONGUE DISORDER [None]
  - UNEVALUABLE EVENT [None]
  - VIBRATION TEST ABNORMAL [None]
  - VISUAL DISTURBANCE [None]
  - WEIGHT DECREASED [None]
